FAERS Safety Report 9577812 (Version 1)
Quarter: 2013Q4

REPORT INFORMATION
  Report Type: Spontaneous
  Country: US (occurrence: US)
  Receive Date: 20131001
  Receipt Date: 20131001
  Transmission Date: 20140711
  Serious: No
  Sender: FDA-Public Use
  Company Number: US-AMGEN-USASP2013010046

PATIENT
  Sex: Male
  Weight: 70.3 kg

DRUGS (4)
  1. ENBREL [Suspect]
     Indication: PSORIATIC ARTHROPATHY
     Dosage: 50 MG, QWK
     Route: 058
  2. IBUPROFEN [Concomitant]
     Dosage: 200 MG, UNK
  3. ESTER C                            /00008001/ [Concomitant]
     Dosage: 500 MG, UNK
  4. VITAMIN A                          /00056002/ [Concomitant]
     Dosage: UNK

REACTIONS (2)
  - Headache [Unknown]
  - Epistaxis [Unknown]
